FAERS Safety Report 24288070 (Version 4)
Quarter: 2024Q4

REPORT INFORMATION
  Report Type: Spontaneous
  Country: BE (occurrence: BE)
  Receive Date: 20240905
  Receipt Date: 20241220
  Transmission Date: 20250115
  Serious: Yes (Death, Life-Threatening, Hospitalization, Other)
  Sender: TEVA
  Company Number: None

PATIENT
  Age: 85 Year
  Sex: Male

DRUGS (40)
  1. BISOPROLOL [Suspect]
     Active Substance: BISOPROLOL
     Indication: Hypertension
     Dosage: 2.5 MG, Q6H
     Route: 048
     Dates: start: 20230426
  2. BISOPROLOL [Suspect]
     Active Substance: BISOPROLOL
     Indication: Hypertension
     Dosage: 2.5 MG, QID (0.25 PER DAY)
     Route: 048
     Dates: start: 20240629
  3. ALDACTONE [Concomitant]
     Active Substance: SPIRONOLACTONE
     Indication: Cardiac failure acute
     Route: 048
  4. ALDACTONE [Concomitant]
     Active Substance: SPIRONOLACTONE
     Indication: Cardiac failure acute
     Route: 042
     Dates: start: 20240630, end: 20240630
  5. ULTRA K [Concomitant]
     Indication: Product used for unknown indication
     Route: 048
     Dates: start: 20240629
  6. ACETAMINOPHEN [Concomitant]
     Active Substance: ACETAMINOPHEN
     Indication: Product used for unknown indication
     Dosage: TIME INTERVAL: AS NECESSARY: 1 G AS NEEDED (PRN)
     Route: 042
     Dates: start: 20240630
  7. ACETAMINOPHEN [Concomitant]
     Active Substance: ACETAMINOPHEN
     Indication: Product used for unknown indication
     Dosage: 500 MG ONCE PO
     Route: 048
     Dates: start: 20240624, end: 20240624
  8. CORDARONE [Suspect]
     Active Substance: AMIODARONE HYDROCHLORIDE
     Indication: Atrial fibrillation
     Dosage: 200 MG, QD
     Route: 048
     Dates: start: 20230309
  9. DARBEPOETIN ALFA [Concomitant]
     Active Substance: DARBEPOETIN ALFA
     Indication: Product used for unknown indication
     Dosage: 40 UG, Q2W
     Route: 058
  10. ZOLPIDEM [Concomitant]
     Active Substance: ZOLPIDEM TARTRATE
     Indication: Product used for unknown indication
     Dosage: TIME INTERVAL: TOTAL: 10 MG, ONCE/SINGLE
     Route: 048
  11. ACORAMIDIS [Concomitant]
     Active Substance: ACORAMIDIS
     Indication: Cardiac amyloidosis
     Route: 048
     Dates: start: 20220816, end: 20220930
  12. DAPAGLIFLOZIN [Suspect]
     Active Substance: DAPAGLIFLOZIN
     Indication: Cardiac failure
     Dosage: 10 MG QD PO
     Route: 048
     Dates: start: 20240629, end: 20240702
  13. DAPAGLIFLOZIN [Suspect]
     Active Substance: DAPAGLIFLOZIN
     Indication: Cardiac failure
     Dosage: 10 MG
     Route: 048
     Dates: start: 20230315, end: 20231004
  14. DAPAGLIFLOZIN [Suspect]
     Active Substance: DAPAGLIFLOZIN
     Indication: Cardiac failure
     Dosage: 10 MG, QD, FORXIGA (DAPAGLIFLOZIN)
     Route: 048
     Dates: start: 20231006, end: 20240618
  15. MORPHINE [Concomitant]
     Active Substance: MORPHINE
     Indication: Product used for unknown indication
     Route: 042
     Dates: start: 20240701
  16. MORPHINE [Concomitant]
     Active Substance: MORPHINE
     Indication: Product used for unknown indication
     Route: 058
     Dates: start: 20240701, end: 20240703
  17. TAMSULOSIN HYDROCHLORIDE [Suspect]
     Active Substance: TAMSULOSIN HYDROCHLORIDE
     Indication: Benign prostatic hyperplasia
     Dosage: 0.4 MG, QD, TAMSULOSIN HYDROCHLORIDE
     Route: 048
     Dates: end: 20240701
  18. TAMSULOSIN HYDROCHLORIDE [Suspect]
     Active Substance: TAMSULOSIN HYDROCHLORIDE
     Indication: Benign prostatic hyperplasia
     Dosage: 0.4 MG, QD, TAMSULOSIN HYDROCHLORIDE
     Route: 048
     Dates: start: 20231006
  19. TAMSULOSIN HYDROCHLORIDE [Suspect]
     Active Substance: TAMSULOSIN HYDROCHLORIDE
     Indication: Benign prostatic hyperplasia
     Dosage: 0.4 MG, QD, TAMSULOSIN HYDROCHLORIDE
     Route: 048
     Dates: end: 20241004
  20. ENTRESTO [Suspect]
     Active Substance: SACUBITRIL\VALSARTAN
     Indication: Cardiac failure
     Dosage: 0.5 DF, BID; 24/26 MG 0.5 TABLET TWICE DAILY (BID) PO
     Route: 048
     Dates: start: 20230522, end: 20231004
  21. BUMETANIDE [Suspect]
     Active Substance: BUMETANIDE
     Indication: Cardiac failure
     Route: 048
     Dates: start: 20230927, end: 20231004
  22. BUMETANIDE [Suspect]
     Active Substance: BUMETANIDE
     Indication: Cardiac failure
     Route: 048
     Dates: start: 20240621
  23. BUMETANIDE [Suspect]
     Active Substance: BUMETANIDE
     Indication: Cardiac failure
     Route: 042
     Dates: start: 20240701, end: 20240701
  24. BUMETANIDE [Suspect]
     Active Substance: BUMETANIDE
     Indication: Cardiac failure
     Route: 048
     Dates: start: 20231006
  25. EDOXABAN TOSYLATE [Suspect]
     Active Substance: EDOXABAN TOSYLATE
     Indication: Thrombosis prophylaxis
     Dosage: UNK
     Route: 048
     Dates: start: 20230924, end: 20231004
  26. EDOXABAN TOSYLATE [Suspect]
     Active Substance: EDOXABAN TOSYLATE
     Indication: Thrombosis prophylaxis
     Dosage: 30 MG, QD
     Route: 048
     Dates: start: 20230315, end: 20230920
  27. SCOPOLAMINE HYDROBROMIDE [Concomitant]
     Active Substance: SCOPOLAMINE HYDROBROMIDE
     Indication: Product used for unknown indication
     Route: 058
     Dates: start: 20240703
  28. FENOTEROL HYDROBROMIDE [Concomitant]
     Active Substance: FENOTEROL HYDROBROMIDE
     Indication: Pneumonia
     Dosage: UNK, 4 TIMES DAILY ((50/20 UG PER DOSE (0.1 UNIT) FOUR TIMES DAILY (QID))
     Route: 050
     Dates: start: 20230924
  29. SPIRONOLACTONE [Suspect]
     Active Substance: SPIRONOLACTONE
     Indication: Cardiac failure
     Dosage: 25 MG, QD
     Route: 048
     Dates: end: 20231004
  30. SPIRONOLACTONE [Suspect]
     Active Substance: SPIRONOLACTONE
     Indication: Cardiac failure
     Dosage: 25 MG, QD
     Route: 048
     Dates: start: 20240630, end: 20230804
  31. SPIRONOLACTONE [Suspect]
     Active Substance: SPIRONOLACTONE
     Indication: Cardiac failure
     Dosage: 25 MG, QD
     Route: 048
     Dates: start: 20231006
  32. SPIRONOLACTONE [Suspect]
     Active Substance: SPIRONOLACTONE
     Indication: Cardiac failure
     Dosage: 25 MG, QD
     Route: 048
     Dates: end: 20230804
  33. ENOXAPARIN SODIUM [Concomitant]
     Active Substance: ENOXAPARIN SODIUM
     Indication: Thrombosis
     Dosage: 40 MG, Q6H
     Route: 058
     Dates: start: 20231004
  34. SIMVASTATIN [Suspect]
     Active Substance: SIMVASTATIN
     Indication: Hypercholesterolaemia
     Dosage: 20 MG, Q6H
     Route: 048
  35. SIMVASTATIN [Suspect]
     Active Substance: SIMVASTATIN
     Indication: Hypercholesterolaemia
     Route: 048
  36. EDOXABAN TOSYLATE [Suspect]
     Active Substance: EDOXABAN TOSYLATE
     Indication: Thrombosis prophylaxis
     Dosage: 30 MG, QD
     Route: 048
     Dates: start: 20230315, end: 20231004
  37. PIPERACILLIN SODIUM\TAZOBACTAM SODIUM [Concomitant]
     Active Substance: PIPERACILLIN SODIUM\TAZOBACTAM SODIUM
     Indication: Pneumonia
     Route: 042
     Dates: start: 20240625, end: 20240703
  38. PANTOPRAZOLE [Suspect]
     Active Substance: PANTOPRAZOLE
     Indication: Gastric ulcer
     Dosage: 40 MG QD
     Route: 048
  39. 1-ALPHA LEO [Concomitant]
     Indication: Vitamin D deficiency
     Dosage: 0.25 ?G, 4 TIMES DAILY (0.25 UG QD PO)
     Route: 048
     Dates: start: 20230523
  40. EDOXABAN TOSYLATE [Suspect]
     Active Substance: EDOXABAN TOSYLATE
     Indication: Thrombosis
     Dosage: 30 MG QD
     Route: 048
     Dates: start: 20240621, end: 20240702

REACTIONS (15)
  - Pneumonia [Fatal]
  - Acute kidney injury [Recovered/Resolved]
  - Cardiac failure congestive [Fatal]
  - Haematuria [Unknown]
  - Liver function test abnormal [Unknown]
  - Presyncope [Unknown]
  - Hypotension [Unknown]
  - Loss of consciousness [Unknown]
  - Atrioventricular block complete [Recovered/Resolved]
  - Dehydration [Recovered/Resolved]
  - Pneumonia [Recovered/Resolved]
  - Pneumonia [Recovered/Resolved]
  - Acute kidney injury [Recovered/Resolved]
  - Dizziness [Unknown]
  - Cardiomegaly [Unknown]

NARRATIVE: CASE EVENT DATE: 20230227
